FAERS Safety Report 14719974 (Version 1)
Quarter: 2018Q2

REPORT INFORMATION
  Report Type: Spontaneous
  Country: FR (occurrence: FR)
  Receive Date: 20180405
  Receipt Date: 20180405
  Transmission Date: 20180711
  Serious: Yes (Hospitalization)
  Sender: FDA-Public Use
  Company Number: FR-AUROBINDO-AUR-APL-2018-017765

PATIENT
  Age: 33 Year
  Sex: Male

DRUGS (2)
  1. TRAMADOL. [Suspect]
     Active Substance: TRAMADOL
     Indication: PRODUCT USED FOR UNKNOWN INDICATION
     Dosage: JUSQU^A 60 CP/J DU DOSAGE ? 50 MG DEPUIS PLUSIEURS ANN?ES ()
     Route: 048
  2. ZOLPIDEM [Suspect]
     Active Substance: ZOLPIDEM\ZOLPIDEM TARTRATE
     Indication: PRODUCT USED FOR UNKNOWN INDICATION
     Dosage: PRISE QUOTIDIENNE DE 3 ? 5 CP ()
     Route: 048

REACTIONS (3)
  - Agitation [Recovered/Resolved]
  - Tonic convulsion [Recovered/Resolved]
  - Hallucinations, mixed [Recovered/Resolved]
